FAERS Safety Report 15401535 (Version 2)
Quarter: 2018Q4

REPORT INFORMATION
  Report Type: Report from Study
  Country: CL (occurrence: CL)
  Receive Date: 20180919
  Receipt Date: 20181001
  Transmission Date: 20190204
  Serious: Yes (Other)
  Sender: FDA-Public Use
  Company Number: PHHY2018CL096298

PATIENT
  Age: 86 Year
  Sex: Female

DRUGS (1)
  1. GLIVEC [Suspect]
     Active Substance: IMATINIB MESYLATE
     Indication: GASTROINTESTINAL STROMAL TUMOUR
     Dosage: 600 MG, QD
     Route: 065

REACTIONS (10)
  - Headache [Unknown]
  - Pharyngitis [Unknown]
  - Blood pressure increased [Unknown]
  - Discomfort [Unknown]
  - Diarrhoea [Unknown]
  - Oedema [Unknown]
  - Vomiting [Unknown]
  - Neoplasm progression [Unknown]
  - Epistaxis [Unknown]
  - Ear pain [Unknown]
